FAERS Safety Report 8027683-1 (Version None)
Quarter: 2012Q1

REPORT INFORMATION
  Report Type: 
  Country: None (occurrence: None)
  Receive Date: 20120106
  Receipt Date: 20111230
  Transmission Date: 20120608
  Serious: Yes (Hospitalization, Other)
  Sender: FDA-Public Use
  Company Number: US-PFIZER INC-2012000299

PATIENT
  Age: 78 Year
  Sex: Male
  Weight: 84.5 kg

DRUGS (30)
  1. OXYCODONE HCL [Suspect]
     Indication: ANALGESIC THERAPY
     Dosage: UNK
  2. CIPROFLOXACIN [Suspect]
     Indication: URINARY TRACT INFECTION
  3. BACLOFEN [Concomitant]
     Dosage: 10 MG, UNK
  4. CAPSAICIN [Concomitant]
     Dosage: 60 G (0.25%)
  5. CINACALCET [Concomitant]
     Dosage: 30 MG, UNK
  6. METFORMIN HCL [Interacting]
     Dosage: 1000 MG, UNK
  7. NAPROXEN [Concomitant]
     Dosage: 500 MG, UNK
  8. RANITIDINE [Concomitant]
     Dosage: 150 MG, UNK
  9. VITAMIN E [Concomitant]
     Dosage: 100 UNITS
  10. VARDENAFIL [Concomitant]
     Dosage: 20 MG, UNK
  11. FUROSEMIDE [Suspect]
     Dosage: 20 MG, UNK
  12. ACETAMINOPHEN [Concomitant]
     Dosage: 500 MG, UNK
  13. ALLOPURINOL [Concomitant]
     Dosage: 100 MG, UNK
  14. COLCHICINE [Concomitant]
     Dosage: 0.6 MG, UNK
  15. DOCUSATE [Concomitant]
     Dosage: 250 MG, UNK
  16. SIMVASTATIN [Concomitant]
     Dosage: 80 MG, UNK
  17. ACETYLSALICYLIC ACID [Concomitant]
     Dosage: 81 MG, UNK
  18. GABAPENTIN [Interacting]
     Dosage: 100 MG, UNK
  19. ACETAMINOPHEN AND OXYCODONE HCL [Suspect]
     Indication: ANALGESIC THERAPY
     Dosage: 5-10MG/500MG
  20. CLONIDINE [Concomitant]
     Dosage: 0.1 MG, UNK
  21. ACETAMINOPHEN AND HYDROCODONE BITARTRATE [Concomitant]
     Dosage: 5/500 MG
  22. FINASTERIDE [Concomitant]
     Dosage: 5 MG, UNK
  23. LISINOPRIL [Concomitant]
     Dosage: 2.5 MG, UNK
  24. DIPHENHYDRAMINE HCL [Suspect]
     Dosage: UNK
  25. TERAZOSIN [Concomitant]
     Dosage: 2 MG, UNK
  26. MORPHINE SULFATE [Interacting]
     Indication: ANALGESIC THERAPY
     Dosage: UNK
     Route: 042
  27. DESIPRAMINE HCL [Suspect]
     Dosage: 50 MG, UNK
  28. ERGOCALCIFEROL [Concomitant]
     Dosage: 5000 UNITS
  29. FERROUS SULFATE [Concomitant]
     Dosage: 325 MG, UNK
  30. OMEPRAZOLE [Concomitant]
     Dosage: 20 MG, UNK

REACTIONS (4)
  - DRUG INTERACTION [None]
  - DRUG LEVEL INCREASED [None]
  - AGITATION [None]
  - DELIRIUM [None]
